FAERS Safety Report 10289864 (Version 3)
Quarter: 2014Q3

REPORT INFORMATION
  Report Type: Spontaneous
  Country: US (occurrence: US)
  Receive Date: 20140710
  Receipt Date: 20140916
  Transmission Date: 20150326
  Serious: Yes (Hospitalization, Other)
  Sender: FDA-Public Use
  Company Number: US-ASTELLAS-2014US008055

PATIENT
  Age: 15 Year
  Sex: Female

DRUGS (2)
  1. PROGRAF [Suspect]
     Active Substance: TACROLIMUS\TACROLIMUS ANHYDROUS
     Indication: PULMONARY ARTERIAL HYPERTENSION
     Route: 060
     Dates: start: 20140326
  2. PROGRAF [Suspect]
     Active Substance: TACROLIMUS\TACROLIMUS ANHYDROUS
     Indication: COR PULMONALE CHRONIC

REACTIONS (3)
  - Pneumonia escherichia [Recovering/Resolving]
  - Off label use [Unknown]
  - Post transplant lymphoproliferative disorder [Recovering/Resolving]

NARRATIVE: CASE EVENT DATE: 20140530
